FAERS Safety Report 7279324-9 (Version None)
Quarter: 2011Q1

REPORT INFORMATION
  Report Type: 
  Country: None (occurrence: None)
  Receive Date: 20110207
  Receipt Date: 20110125
  Transmission Date: 20110831
  Serious: Yes (Other)
  Sender: FDA-Public Use
  Company Number: JP-MERCK-0909USA02311B1

PATIENT
  Sex: Female
  Weight: 1 kg

DRUGS (1)
  1. DECADRON PHOSPHATE [Suspect]
     Route: 064

REACTIONS (4)
  - MATERNAL DRUGS AFFECTING FOETUS [None]
  - NEONATAL RESPIRATORY DISTRESS SYNDROME [None]
  - SMALL FOR DATES BABY [None]
  - CAESAREAN SECTION [None]
